FAERS Safety Report 9401361 (Version 1)
Quarter: 2013Q3

REPORT INFORMATION
  Report Type: Spontaneous
  Country: CN (occurrence: CN)
  Receive Date: 20130715
  Receipt Date: 20130715
  Transmission Date: 20140515
  Serious: Yes (Other)
  Sender: FDA-Public Use
  Company Number: CN-BAXTER-2013BAX026646

PATIENT
  Age: 54 Year
  Sex: Male
  Weight: 60 kg

DRUGS (2)
  1. 20% MANNITOL INJECTION [Suspect]
     Indication: HAEMORRHAGE
     Route: 041
     Dates: start: 20120924, end: 20121010
  2. 20% MANNITOL INJECTION [Suspect]
     Indication: BRAIN OEDEMA

REACTIONS (2)
  - Chest discomfort [Recovering/Resolving]
  - Nausea [Recovering/Resolving]
